FAERS Safety Report 25184542 (Version 5)
Quarter: 2025Q4

REPORT INFORMATION
  Report Type: Report from Study
  Country: US (occurrence: US)
  Receive Date: 20250410
  Receipt Date: 20251201
  Transmission Date: 20260118
  Serious: No
  Sender: AGIOS PHARMACEUTICALS
  Company Number: US-AGIOS-2504US04213

PATIENT
  Sex: Male
  Weight: 77.098 kg

DRUGS (1)
  1. MITAPIVAT [Suspect]
     Active Substance: MITAPIVAT
     Indication: Pyruvate kinase deficiency anaemia
     Dosage: 50 MILLIGRAM, BID
     Route: 048
     Dates: start: 20220623

REACTIONS (6)
  - Foot fracture [Unknown]
  - Swelling [Unknown]
  - Drug interaction [Unknown]
  - Procedural pain [Unknown]
  - Limb injury [Unknown]
  - Foot operation [Unknown]
